FAERS Safety Report 5079774-5 (Version None)
Quarter: 2006Q3

REPORT INFORMATION
  Report Type: 
  Country: None (occurrence: None)
  Receive Date: 20060815
  Receipt Date: 20060726
  Transmission Date: 20061208
  Serious: Yes (Death, Hospitalization, Other)
  Sender: FDA-Public Use
  Company Number: US-BAYER-200614818BWH

PATIENT
  Age: 79 Year
  Sex: Male

DRUGS (2)
  1. NEXAVAR [Suspect]
     Indication: RENAL CELL CARCINOMA STAGE UNSPECIFIED
     Dosage: TOTAL DAILY DOSE: 800 MG  UNIT DOSE: 200 MG
     Route: 048
     Dates: start: 20060528, end: 20060601
  2. NEXAVAR [Suspect]
     Dosage: TOTAL DAILY DOSE: 400 MG  UNIT DOSE: 200 MG
     Route: 048
     Dates: start: 20060601, end: 20060712

REACTIONS (6)
  - ABDOMINAL PAIN UPPER [None]
  - BACK PAIN [None]
  - DIARRHOEA [None]
  - HAEMOPTYSIS [None]
  - HEART RATE INCREASED [None]
  - INTESTINAL INFARCTION [None]
